FAERS Safety Report 6154987-X (Version None)
Quarter: 2009Q2

REPORT INFORMATION
  Report Type: 
  Country: None (occurrence: None)
  Receive Date: 20090410
  Receipt Date: 20090331
  Transmission Date: 20091009
  Serious: Yes (Death, Life-Threatening)
  Sender: FDA-Public Use
  Company Number: S07-FRA-02785-01

PATIENT
  Age: 77 Year
  Sex: Male

DRUGS (7)
  1. CITALOPRAM HYDROBROMIDE [Suspect]
     Dates: end: 20070202
  2. PREVISCAN (FLUINDIONE) [Suspect]
     Dosage: ORAL
     Route: 048
     Dates: end: 20070202
  3. PREVISCAN (FLUINDIONE) [Suspect]
     Dosage: ORAL
     Route: 048
     Dates: start: 20070221
  4. DIFFU K (POTASSIUM CHLORIDE) (POTASSIUM CHLORIDE) [Concomitant]
  5. LASILIX (FUROSEMIDE) (FUROSEMIDE) [Concomitant]
  6. DIGOXINE (DIGOXINE) (DIGOXINE) [Concomitant]
  7. TEMESTA (LORAZEPAM) (LORAZEPAM) [Concomitant]

REACTIONS (7)
  - COMA [None]
  - DRUG INTERACTION [None]
  - FALL [None]
  - INTERNATIONAL NORMALISED RATIO INCREASED [None]
  - MENINGORRHAGIA [None]
  - PNEUMONIA PNEUMOCOCCAL [None]
  - SUBDURAL HAEMATOMA [None]
